FAERS Safety Report 7821196-5 (Version None)
Quarter: 2011Q4

REPORT INFORMATION
  Report Type: 
  Country: None (occurrence: None)
  Receive Date: 20111018
  Receipt Date: 20111013
  Transmission Date: 20120403
  Serious: Yes (Hospitalization, Other)
  Sender: FDA-Public Use
  Company Number: JP-PFIZER INC-2011154982

PATIENT
  Age: 39 Year
  Sex: Female
  Weight: 95 kg

DRUGS (12)
  1. QUAZEPAM [Concomitant]
     Route: 048
  2. RISPERDAL [Concomitant]
     Route: 048
  3. LIPITOR [Suspect]
     Indication: HYPERLIPIDAEMIA
     Dosage: 5 MG, 1X/DAY
     Route: 048
  4. NIZATIDINE [Concomitant]
     Route: 048
  5. PHENOBARBITAL TAB [Concomitant]
     Route: 048
  6. FLUNITRAZEPAM [Concomitant]
     Route: 048
  7. LORAZEPAM [Concomitant]
     Route: 048
  8. ZYPREXA [Concomitant]
     Route: 048
  9. ZOLPIDEM TARTRATE [Concomitant]
     Route: 048
  10. TRIAZOLAM [Concomitant]
     Route: 048
  11. EPERISONE HYDROCHLORIDE [Concomitant]
     Route: 048
  12. ZITHROMAX [Suspect]
     Indication: NASOPHARYNGITIS
     Dosage: UNK
     Route: 048
     Dates: start: 20110702

REACTIONS (5)
  - BLISTER [None]
  - RHABDOMYOLYSIS [None]
  - HYPOVENTILATION [None]
  - SKIN EROSION [None]
  - RESPIRATORY TRACT OEDEMA [None]
